FAERS Safety Report 6902032-8 (Version None)
Quarter: 2010Q3

REPORT INFORMATION
  Report Type: 
  Country: None (occurrence: None)
  Receive Date: 20100803
  Receipt Date: 20080408
  Transmission Date: 20110219
  Serious: Yes (Other)
  Sender: FDA-Public Use
  Company Number: US-PFIZER INC-2008019254

PATIENT
  Sex: Male

DRUGS (5)
  1. LYRICA [Suspect]
  2. DEPAKOTE [Interacting]
  3. TRAZODONE HCL [Interacting]
  4. DURAGESIC-100 [Interacting]
  5. ANTIHYPERTENSIVES [Interacting]

REACTIONS (5)
  - AGEUSIA [None]
  - DRUG INTERACTION [None]
  - NIGHTMARE [None]
  - PARANOIA [None]
  - VISION BLURRED [None]
